FAERS Safety Report 7794923-3 (Version None)
Quarter: 2011Q4

REPORT INFORMATION
  Report Type: 
  Country: None (occurrence: None)
  Receive Date: 20111004
  Receipt Date: 20110928
  Transmission Date: 20120403
  Serious: Yes (Disabling, Other)
  Sender: FDA-Public Use
  Company Number: DK-PFIZER INC-2011201118

PATIENT
  Age: 62 Year
  Sex: Male
  Weight: 80 kg

DRUGS (7)
  1. GENOTROPIN [Concomitant]
     Dosage: UNK
     Dates: end: 20100801
  2. VITAMIN D [Concomitant]
     Dosage: 2 TABLETS DAILY
  3. NEBIDO [Concomitant]
     Dosage: GIVEN EVERY 7 WEEK
  4. LEVOTHYROXINE SODIUM [Concomitant]
     Dosage: 100 UG, 2X/DAY
  5. LYRICA [Suspect]
     Indication: ANXIETY
     Dosage: 150 MG, 2X/DAY
     Dates: start: 20101015
  6. HYDROCORTISONE [Concomitant]
     Dosage: 10 MG, 1X/DAY
  7. LITHIUM CITRATE [Concomitant]
     Dosage: 50 UG, 2X/DAY

REACTIONS (1)
  - VITREOUS DETACHMENT [None]
